FAERS Safety Report 20481628 (Version 2)
Quarter: 2022Q1

REPORT INFORMATION
  Report Type: Spontaneous
  Country: TW (occurrence: TW)
  Receive Date: 20220216
  Receipt Date: 20220310
  Transmission Date: 20220424
  Serious: Yes (Hospitalization, Other)
  Sender: FDA-Public Use
  Company Number: TW-PFIZER INC-202200223879

PATIENT
  Age: 58 Year
  Sex: Female

DRUGS (2)
  1. BEVACIZUMAB [Suspect]
     Active Substance: BEVACIZUMAB
     Dosage: 7MG/KG
     Dates: start: 20200918, end: 20210329
  2. IRESSA [Suspect]
     Active Substance: GEFITINIB
     Dosage: 250 MG, QD
     Dates: start: 20200916, end: 20210427

REACTIONS (1)
  - Metastases to central nervous system [Unknown]

NARRATIVE: CASE EVENT DATE: 20210305
